FAERS Safety Report 25410961 (Version 2)
Quarter: 2025Q3

REPORT INFORMATION
  Report Type: Spontaneous
  Country: US (occurrence: US)
  Receive Date: 20250609
  Receipt Date: 20250901
  Transmission Date: 20251021
  Serious: Yes (Hospitalization)
  Sender: TWI PHARMACEUTICALS
  Company Number: US-TWI PHARMACEUTICAL, INC-20250500883

PATIENT
  Age: 49 Year
  Sex: Female

DRUGS (2)
  1. ATENOLOL [Suspect]
     Active Substance: ATENOLOL
     Indication: Blood pressure abnormal
     Route: 065
     Dates: start: 2025, end: 20250509
  2. CAPLYTA [Suspect]
     Active Substance: LUMATEPERONE
     Indication: Product used for unknown indication
     Route: 065
     Dates: start: 202504

REACTIONS (2)
  - Drug interaction [Unknown]
  - Atrial flutter [Unknown]

NARRATIVE: CASE EVENT DATE: 20250401
